FAERS Safety Report 23924813 (Version 3)
Quarter: 2024Q3

REPORT INFORMATION
  Report Type: Report from Study
  Country: JP (occurrence: JP)
  Receive Date: 20240531
  Receipt Date: 20240905
  Transmission Date: 20241017
  Serious: Yes (Hospitalization)
  Sender: AMGEN
  Company Number: JP-HORIZON THERAPEUTICS-HZN-2023-008335

PATIENT
  Age: 75 Year
  Sex: Female
  Weight: 43 kg

DRUGS (14)
  1. INEBILIZUMAB [Suspect]
     Active Substance: INEBILIZUMAB
     Indication: Neuromyelitis optica spectrum disorder
     Dosage: 300 MILLIGRAM, QD
     Route: 042
     Dates: start: 20220511
  2. INEBILIZUMAB [Suspect]
     Active Substance: INEBILIZUMAB
     Dosage: 300 MILLIGRAM, QD
     Route: 042
     Dates: start: 20220525
  3. INEBILIZUMAB [Suspect]
     Active Substance: INEBILIZUMAB
     Dosage: 300 MILLIGRAM, QD
     Route: 042
     Dates: start: 20221109
  4. INEBILIZUMAB [Suspect]
     Active Substance: INEBILIZUMAB
     Dosage: 300 MILLIGRAM, QD
     Route: 042
     Dates: start: 20230531
  5. INEBILIZUMAB [Suspect]
     Active Substance: INEBILIZUMAB
     Dosage: 300 MILLIGRAM, QD
     Route: 042
     Dates: start: 20231115
  6. INEBILIZUMAB [Suspect]
     Active Substance: INEBILIZUMAB
     Dosage: 300 MILLIGRAM, QD
     Route: 042
     Dates: start: 20240522
  7. PREDNISOLONE [Concomitant]
     Active Substance: PREDNISOLONE
     Indication: Neuromyelitis optica spectrum disorder
     Dosage: UNK
     Route: 065
     Dates: start: 20220413, end: 20240522
  8. CANAGLIFLOZIN\TENELIGLIPTIN [Concomitant]
     Active Substance: CANAGLIFLOZIN\TENELIGLIPTIN
     Indication: Diabetes mellitus
     Dosage: UNK
     Dates: start: 20230201
  9. LYRICA [Concomitant]
     Active Substance: PREGABALIN
     Indication: Neuromyelitis optica spectrum disorder
     Dosage: UNK
     Dates: end: 20230308
  10. VONOPRAZAN FUMARATE [Concomitant]
     Active Substance: VONOPRAZAN FUMARATE
     Indication: Prophylaxis
     Dosage: UNK
  11. MEXITIL [Concomitant]
     Active Substance: MEXILETINE HYDROCHLORIDE
     Indication: Neuromyelitis optica spectrum disorder
     Dosage: UNK
  12. MINODRONIC ACID [Concomitant]
     Active Substance: MINODRONIC ACID
     Indication: Prophylaxis
     Dosage: UNK
  13. BIO-THREE [Concomitant]
     Active Substance: HERBALS
     Indication: Prophylaxis
     Dosage: UNK
  14. SULFAMETHOXAZOLE\TRIMETHOPRIM [Concomitant]
     Active Substance: SULFAMETHOXAZOLE\TRIMETHOPRIM
     Indication: Prophylaxis
     Dosage: UNK

REACTIONS (4)
  - COVID-19 [Unknown]
  - COVID-19 [Recovered/Resolved]
  - Off label use [Unknown]
  - Off label use [Unknown]

NARRATIVE: CASE EVENT DATE: 20230531
